FAERS Safety Report 12416196 (Version 1)
Quarter: 2016Q2

REPORT INFORMATION
  Report Type: Spontaneous
  Country: US (occurrence: US)
  Receive Date: 20160530
  Receipt Date: 20160530
  Transmission Date: 20160815
  Serious: Yes (Hospitalization)
  Sender: FDA-Public Use
  Company Number: US-PFIZER INC-2016266531

PATIENT

DRUGS (1)
  1. IBRANCE [Suspect]
     Active Substance: PALBOCICLIB
     Dosage: 125 MG, ONDE DAILY  CYCLIC (3 WEEKS ON, 1 WEEK OFF)
     Route: 048
     Dates: start: 201604, end: 201605

REACTIONS (4)
  - Diarrhoea [Unknown]
  - Haematochezia [Unknown]
  - Colitis ulcerative [Unknown]
  - Polyp [Unknown]
